FAERS Safety Report 13405418 (Version 1)
Quarter: 2017Q2

REPORT INFORMATION
  Report Type: Spontaneous
  Country: US (occurrence: US)
  Receive Date: 20170405
  Receipt Date: 20170405
  Transmission Date: 20170830
  Serious: No
  Sender: FDA-Public Use
  Company Number: US-009507513-1704USA001041

PATIENT
  Age: 59 Year
  Sex: Female

DRUGS (1)
  1. JANUMET XR [Suspect]
     Active Substance: METFORMIN HYDROCHLORIDE\SITAGLIPTIN PHOSPHATE
     Indication: DIABETES MELLITUS
     Dosage: 1 PILL, ONE SINGLE DOSE
     Route: 048
     Dates: start: 20170330, end: 20170330

REACTIONS (2)
  - Nausea [Recovered/Resolved]
  - Diarrhoea [Recovered/Resolved]

NARRATIVE: CASE EVENT DATE: 20170330
